FAERS Safety Report 5591436-4 (Version None)
Quarter: 2008Q1

REPORT INFORMATION
  Report Type: 
  Country: None (occurrence: None)
  Receive Date: 20080111
  Receipt Date: 20080104
  Transmission Date: 20080703
  Serious: Yes (Hospitalization, Other)
  Sender: FDA-Public Use
  Company Number: TPA2007A02408

PATIENT
  Age: 60 Year
  Sex: Female
  Weight: 77.1115 kg

DRUGS (10)
  1. ACTOS [Suspect]
     Indication: TYPE 2 DIABETES MELLITUS
     Dosage: 15 MG, 1 IN 1 D, PER ORAL
     Route: 048
     Dates: start: 20040119
  2. AVAPRO (IRBESARTAN) (UNKNOWN) [Concomitant]
  3. ZOCOR (SIMVASTATIN) (UNKNOWN) [Concomitant]
  4. ZETIA (EZETIMIBE) (UNKNOWN) [Concomitant]
  5. VYTORIN [Concomitant]
  6. ACYCLOVIR [Concomitant]
  7. CLARITIN [Concomitant]
  8. MULTIVITAMIN [Concomitant]
  9. RHINOCORT [Concomitant]
  10. VIACTIVE (CALCIUM) [Concomitant]

REACTIONS (10)
  - FALL [None]
  - FIBULA FRACTURE [None]
  - GREENSTICK FRACTURE [None]
  - HAND FRACTURE [None]
  - HUMERUS FRACTURE [None]
  - JOINT DISLOCATION [None]
  - RADIUS FRACTURE [None]
  - ROAD TRAFFIC ACCIDENT [None]
  - TIBIA FRACTURE [None]
  - ULNA FRACTURE [None]
